FAERS Safety Report 23461990 (Version 1)
Quarter: 2024Q1

REPORT INFORMATION
  Report Type: Spontaneous
  Country: US (occurrence: None)
  Receive Date: 20240130
  Receipt Date: 20240130
  Transmission Date: 20240409
  Serious: No
  Sender: FDA-Public Use
  Company Number: None

PATIENT
  Sex: 0

DRUGS (2)
  1. PRILOSEC [Suspect]
     Active Substance: OMEPRAZOLE MAGNESIUM
  2. ESOMEPRAZOLE [Suspect]
     Active Substance: ESOMEPRAZOLE

REACTIONS (2)
  - Chest pain [None]
  - Gastrooesophageal reflux disease [None]
